FAERS Safety Report 5207025-7 (Version None)
Quarter: 2007Q1

REPORT INFORMATION
  Report Type: 
  Country: None (occurrence: None)
  Receive Date: 20070110
  Receipt Date: 20070103
  Transmission Date: 20070707
  Serious: Yes (Hospitalization)
  Sender: FDA-Public Use
  Company Number: 2007SP000146

PATIENT
  Sex: Female

DRUGS (2)
  1. ALBUTEROL SULFATE [Suspect]
     Indication: ASTHMA
     Dosage: INH
     Route: 055
  2. PROVENTIL [Suspect]
     Indication: ASTHMA
     Dosage: INH
     Route: 055

REACTIONS (1)
  - NO ADVERSE EFFECT [None]
